FAERS Safety Report 5915823-7 (Version None)
Quarter: 2008Q4

REPORT INFORMATION
  Report Type: 
  Country: None (occurrence: None)
  Receive Date: 20081010
  Receipt Date: 20080929
  Transmission Date: 20090506
  Serious: Yes (Other)
  Sender: FDA-Public Use
  Company Number: HU-PFIZER INC-2008081693

PATIENT
  Age: 79 Year
  Sex: Female

DRUGS (6)
  1. LYRICA [Suspect]
     Indication: DIABETIC NEUROPATHY
     Route: 048
     Dates: start: 20040101, end: 20080901
  2. LYRICA [Suspect]
     Indication: POST HERPETIC NEURALGIA
  3. BISOBLOC [Concomitant]
     Route: 048
  4. TRITACE [Concomitant]
     Route: 048
  5. ADIMET [Concomitant]
     Route: 048
  6. NOVOLOG MIX 70/30 [Concomitant]
     Route: 058

REACTIONS (7)
  - ARTHRALGIA [None]
  - BALANCE DISORDER [None]
  - DIABETES MELLITUS [None]
  - FLATULENCE [None]
  - OEDEMA PERIPHERAL [None]
  - PAIN IN EXTREMITY [None]
  - VERTIGO [None]
